FAERS Safety Report 5771466-X (Version None)
Quarter: 2008Q2

REPORT INFORMATION
  Report Type: 
  Country: None (occurrence: None)
  Receive Date: 20080613
  Receipt Date: 20080327
  Transmission Date: 20081010
  Serious: Yes (Hospitalization)
  Sender: FDA-Public Use
  Company Number: FR-AVENTIS-200812170FR

PATIENT
  Age: 64 Year
  Sex: Female

DRUGS (5)
  1. LOVENOX [Suspect]
  2. SMECTA                             /01255901/ [Suspect]
     Route: 048
  3. CARBOPLATINE MERCK [Suspect]
     Route: 042
     Dates: start: 20060112, end: 20060112
  4. VANCOMYCINE SANDOZ [Suspect]
     Route: 048
     Dates: start: 20060104, end: 20060118
  5. HEPARIN [Concomitant]
     Route: 042

REACTIONS (1)
  - RENAL FAILURE ACUTE [None]
